FAERS Safety Report 4385922-2 (Version None)
Quarter: 2004Q2

REPORT INFORMATION
  Report Type: 
  Country: None (occurrence: None)
  Receive Date: 20040622
  Receipt Date: 20040609
  Transmission Date: 20050107
  Serious: Yes (Life-Threatening, Hospitalization)
  Sender: FDA-Public Use
  Company Number: 04H-055-0263722-00

PATIENT
  Age: 31 Year
  Sex: Female

DRUGS (6)
  1. PENTOTHAL [Suspect]
     Indication: ANAESTHESIA
     Dosage: 500 MG, ONCE, INTRAVENOUS
     Route: 042
     Dates: start: 20040527, end: 20040527
  2. ROCURONIUM BROMIDE [Concomitant]
  3. FENTANYL CITRATE [Concomitant]
  4. ACETAMINOPHEN [Concomitant]
  5. VALDECOXIB [Concomitant]
  6. MIDAZOLAM HCL [Concomitant]

REACTIONS (6)
  - EYELID OEDEMA [None]
  - FACE OEDEMA [None]
  - GENERALISED ERYTHEMA [None]
  - LIP BLISTER [None]
  - LOCALISED OEDEMA [None]
  - PHARYNGEAL OEDEMA [None]
